FAERS Safety Report 20356454 (Version 1)
Quarter: 2022Q1

REPORT INFORMATION
  Report Type: Spontaneous
  Country: US (occurrence: None)
  Receive Date: 20220119
  Receipt Date: 20220119
  Transmission Date: 20220423
  Serious: No
  Sender: FDA-Public Use
  Company Number: None

PATIENT
  Age: 56 Year
  Sex: Male
  Weight: 95.25 kg

DRUGS (3)
  1. GAMMAKED [Suspect]
     Active Substance: HUMAN IMMUNOGLOBULIN G
  2. Acetaminophen 325mg Oral [Concomitant]
  3. Diphenhydramine 50mg lV [Concomitant]

REACTIONS (2)
  - Nausea [None]
  - Dizziness [None]

NARRATIVE: CASE EVENT DATE: 20220117
